FAERS Safety Report 21856958 (Version 2)
Quarter: 2023Q2

REPORT INFORMATION
  Report Type: Spontaneous
  Country: US (occurrence: US)
  Receive Date: 20230113
  Receipt Date: 20230614
  Transmission Date: 20230722
  Serious: Yes (Death, Hospitalization, Other)
  Sender: FDA-Public Use
  Company Number: US-AMNEAL PHARMACEUTICALS-2022-AMRX-04271

PATIENT
  Age: 74 Year
  Sex: Female

DRUGS (4)
  1. RYTARY [Suspect]
     Active Substance: CARBIDOPA\LEVODOPA
     Indication: Product used for unknown indication
     Dosage: 36.25-145 MG AND 61.25-245 MG, TAKE 1 CAPSULE BY MOUTH 5 TIMES A DAY FOR BOTH STRENGTHS
     Route: 048
  2. RYTARY [Suspect]
     Active Substance: CARBIDOPA\LEVODOPA
     Dosage: 61.25-245 MG, TAKE 1 CAPSULE BY MOUTH 5 TIMES A DAY
     Route: 048
  3. RYTARY [Suspect]
     Active Substance: CARBIDOPA\LEVODOPA
     Dosage: 36.25-145 MG AND 61.25-245 MG, TAKE 1 CAPSULE BY MOUTH 5 TIMES A DAY FOR BOTH STRENGTHS
     Route: 048
  4. RYTARY [Suspect]
     Active Substance: CARBIDOPA\LEVODOPA
     Dosage: 36.25-145 MG, TAKE 1 CAPSULE BY MOUTH 5 TIMES A DAY
     Route: 048

REACTIONS (5)
  - Cerebrovascular accident [Fatal]
  - Coma [Unknown]
  - Anxiety [Unknown]
  - Dyskinesia [Unknown]
  - Product use complaint [Unknown]

NARRATIVE: CASE EVENT DATE: 20220511
